FAERS Safety Report 8357782-6 (Version None)
Quarter: 2012Q2

REPORT INFORMATION
  Report Type: 
  Country: None (occurrence: None)
  Receive Date: 20120514
  Receipt Date: 20110803
  Transmission Date: 20120825
  Serious: No
  Sender: FDA-Public Use
  Company Number: US-TEVA-2011004079

PATIENT
  Sex: Female
  Weight: 57.658 kg

DRUGS (3)
  1. NUVIGIL [Suspect]
     Indication: FATIGUE
  2. RITALIN [Concomitant]
     Dates: start: 20100101
  3. NUVIGIL [Suspect]
     Indication: NARCOLEPSY
     Dosage: 150 MILLIGRAM;
     Route: 048
     Dates: start: 20110101, end: 20110803

REACTIONS (2)
  - DRUG INEFFECTIVE [None]
  - DEPRESSED MOOD [None]
